FAERS Safety Report 6446294-2 (Version None)
Quarter: 2009Q4

REPORT INFORMATION
  Report Type: 
  Country: None (occurrence: None)
  Receive Date: 20091119
  Receipt Date: 20091116
  Transmission Date: 20100525
  Serious: Yes (Other)
  Sender: FDA-Public Use
  Company Number: US-ROCHE-669500

PATIENT
  Sex: Female

DRUGS (7)
  1. VALIUM [Suspect]
     Indication: DRUG USE FOR UNKNOWN INDICATION
     Route: 065
  2. VALIUM [Suspect]
     Dosage: DOSAGE INCREASED
     Route: 065
  3. PEGASYS [Suspect]
     Indication: HEPATITIS C
     Dosage: FORM: PFS; MISSED TWO WEEKS OF MEDICATION
     Route: 065
     Dates: start: 20090720
  4. PEGASYS [Suspect]
     Route: 065
  5. RIBAVIRIN [Suspect]
     Indication: HEPATITIS C
     Dosage: MISSED TWO WEEKS OF MEDICATION
     Route: 065
     Dates: start: 20090720
  6. RIBAVIRIN [Suspect]
     Route: 065
  7. CYMBALTA [Concomitant]

REACTIONS (8)
  - DRUG DOSE OMISSION [None]
  - ECONOMIC PROBLEM [None]
  - FATIGUE [None]
  - HEPATIC ENZYME INCREASED [None]
  - LOSS OF EMPLOYMENT [None]
  - MALAISE [None]
  - PAIN [None]
  - SUICIDAL IDEATION [None]
